FAERS Safety Report 22966273 (Version 5)
Quarter: 2025Q2

REPORT INFORMATION
  Report Type: Report from Study
  Country: IN (occurrence: IN)
  Receive Date: 20230921
  Receipt Date: 20250525
  Transmission Date: 20250716
  Serious: Yes (Hospitalization, Other)
  Sender: TAKEDA
  Company Number: IN-TAKEDA-2023TUS090735

PATIENT
  Sex: Male

DRUGS (1)
  1. VEDOLIZUMAB [Suspect]
     Active Substance: VEDOLIZUMAB
     Indication: Colitis ulcerative

REACTIONS (11)
  - Colitis ulcerative [Unknown]
  - Frequent bowel movements [Unknown]
  - Mucous stools [Unknown]
  - Back pain [Unknown]
  - Stress [Unknown]
  - Sleep disorder [Unknown]
  - Weight decreased [Unknown]
  - Blood iron decreased [Unknown]
  - Pseudopolyp [Unknown]
  - Haemoglobin decreased [Unknown]
  - Decreased appetite [Unknown]
